FAERS Safety Report 12628343 (Version 2)
Quarter: 2016Q3

REPORT INFORMATION
  Report Type: Spontaneous
  Country: US (occurrence: US)
  Receive Date: 20160808
  Receipt Date: 20160810
  Transmission Date: 20161109
  Serious: Yes (Life-Threatening, Other)
  Sender: FDA-Public Use
  Company Number: US-ROCHE-1808188

PATIENT
  Age: 69 Year
  Sex: Female

DRUGS (9)
  1. CITALOPRAM [Concomitant]
     Active Substance: CITALOPRAM HYDROBROMIDE
     Route: 065
  2. CEVIMELINE. [Concomitant]
     Active Substance: CEVIMELINE
     Route: 065
  3. CYTOXAN [Suspect]
     Active Substance: CYCLOPHOSPHAMIDE
     Indication: EXTRANODAL MARGINAL ZONE B-CELL LYMPHOMA (MALT TYPE)
     Dosage: 6 CYCLES
     Route: 065
     Dates: start: 20160205, end: 20160610
  4. ADRIAMYCIN [Suspect]
     Active Substance: DOXORUBICIN HYDROCHLORIDE
     Indication: EXTRANODAL MARGINAL ZONE B-CELL LYMPHOMA (MALT TYPE)
     Dosage: 6 CYCLES
     Route: 065
     Dates: start: 20160205, end: 20160610
  5. VINCRISTINE [Suspect]
     Active Substance: VINCRISTINE
     Indication: EXTRANODAL MARGINAL ZONE B-CELL LYMPHOMA (MALT TYPE)
     Dosage: 6 CYCLES
     Route: 065
     Dates: start: 20160205, end: 20160610
  6. VINCRISTINE [Suspect]
     Active Substance: VINCRISTINE
     Indication: MANTLE CELL LYMPHOMA
  7. PEPCID [Concomitant]
     Active Substance: FAMOTIDINE
     Route: 065
  8. RITUXAN [Suspect]
     Active Substance: RITUXIMAB
     Indication: EXTRANODAL MARGINAL ZONE B-CELL LYMPHOMA (MALT TYPE)
     Dosage: 6 CYCLES
     Route: 065
     Dates: start: 20160205, end: 20160610
  9. NASACORT [Concomitant]
     Active Substance: TRIAMCINOLONE ACETONIDE

REACTIONS (6)
  - Progressive multifocal leukoencephalopathy [Unknown]
  - JC virus test positive [Unknown]
  - Amnesia [Unknown]
  - Dizziness [Unknown]
  - Brain oedema [Unknown]
  - Ataxia [Unknown]

NARRATIVE: CASE EVENT DATE: 20160630
